FAERS Safety Report 9007160 (Version 3)
Quarter: 2013Q1

REPORT INFORMATION
  Report Type: Spontaneous
  Country: US (occurrence: US)
  Receive Date: 20130110
  Receipt Date: 20130218
  Transmission Date: 20140127
  Serious: No
  Sender: FDA-Public Use
  Company Number: US-PFIZER INC-2013009364

PATIENT
  Age: 64 Year
  Sex: Male
  Weight: 88 kg

DRUGS (5)
  1. LIPITOR [Suspect]
     Indication: BLOOD CHOLESTEROL INCREASED
     Dosage: 20 MG, ONCE A DAY
     Route: 048
     Dates: start: 2002, end: 201205
  2. ATORVASTATIN CALCIUM [Suspect]
     Indication: BLOOD CHOLESTEROL INCREASED
     Dosage: 20 MG, ONCE A DAY
     Route: 048
     Dates: start: 201205, end: 20121220
  3. PREDNISONE [Suspect]
     Indication: PRURITUS
     Dosage: UNK
  4. HYDROXYZINE HYDROCHLORIDE [Suspect]
     Indication: ACARODERMATITIS
     Dosage: UNK
  5. PERMETHRIN [Suspect]
     Indication: ACARODERMATITIS
     Dosage: UNK

REACTIONS (6)
  - Pruritus [Recovering/Resolving]
  - Rash [Recovering/Resolving]
  - Acarodermatitis [Unknown]
  - Drug hypersensitivity [Unknown]
  - Rash [Recovering/Resolving]
  - Pruritus [Recovering/Resolving]
